FAERS Safety Report 8268087-6 (Version None)
Quarter: 2012Q2

REPORT INFORMATION
  Report Type: 
  Country: None (occurrence: None)
  Receive Date: 20120409
  Receipt Date: 20120330
  Transmission Date: 20120825
  Serious: Yes (Other)
  Sender: FDA-Public Use
  Company Number: JP-CELGENEUS-087-21880-11043478

PATIENT
  Sex: Male

DRUGS (41)
  1. DEXAMETHASONE ACETATE [Suspect]
     Indication: MULTIPLE MYELOMA
     Dosage: 40 MILLIGRAM
     Route: 048
     Dates: start: 20101203, end: 20101203
  2. MAGNESIUM SULFATE [Concomitant]
     Dosage: 660 MILLIGRAM
     Route: 048
     Dates: start: 20081107
  3. FAMOTIDINE [Concomitant]
     Indication: PROPHYLAXIS
     Dosage: 20 MILLIGRAM
     Route: 048
     Dates: start: 20110427
  4. REVLIMID [Suspect]
     Indication: MULTIPLE MYELOMA
     Dosage: 10 MILLIGRAM
     Route: 048
     Dates: start: 20101203, end: 20101223
  5. SPIRIVA [Concomitant]
     Route: 055
     Dates: start: 20110105
  6. SPIRIVA [Concomitant]
     Dosage: 18 MICROGRAM
     Route: 055
     Dates: start: 20110302
  7. LANSOPRAZOLE [Concomitant]
     Indication: PROPHYLAXIS
     Dosage: 30 MILLIGRAM
     Route: 048
     Dates: start: 20101203
  8. LEUPROLIDE ACETATE [Concomitant]
     Dosage: 3.75 MILLIGRAM
     Route: 058
     Dates: start: 20101227, end: 20101227
  9. ARICEPT [Concomitant]
     Dosage: 3 MILLIGRAM
     Route: 048
     Dates: start: 20110318
  10. MYSER [Concomitant]
     Route: 061
     Dates: start: 20100927
  11. REVLIMID [Suspect]
     Dosage: 10 MILLIGRAM
     Route: 048
     Dates: start: 20110105, end: 20110118
  12. DEXAMETHASONE ACETATE [Suspect]
     Dosage: 40 MILLIGRAM
     Route: 048
     Dates: start: 20101210, end: 20101210
  13. DEXAMETHASONE ACETATE [Suspect]
     Dosage: 40 MILLIGRAM
     Route: 048
     Dates: start: 20110330, end: 20110331
  14. HOKUNALIN:TAPE [Concomitant]
     Dosage: 2 MILLIGRAM
     Route: 065
     Dates: start: 20090209
  15. SPIRIVA [Concomitant]
     Dosage: 18 MICROGRAM
     Route: 055
     Dates: start: 20090203
  16. LEUPROLIDE ACETATE [Concomitant]
     Dosage: 3.75 MILLIGRAM
     Route: 058
     Dates: start: 20110202, end: 20110202
  17. REVLIMID [Suspect]
     Dosage: 10 MILLIGRAM
     Route: 048
     Dates: start: 20110202, end: 20110215
  18. REVLIMID [Suspect]
     Dosage: 10 MILLIGRAM
     Route: 048
     Dates: start: 20110525, end: 20110531
  19. DEXAMETHASONE ACETATE [Suspect]
     Dosage: 40 MILLIGRAM
     Route: 048
     Dates: start: 20110202, end: 20110203
  20. DEXAMETHASONE ACETATE [Suspect]
     Dosage: 40 MILLIGRAM
     Route: 048
     Dates: start: 20110302, end: 20110305
  21. CIPROFLOXACIN [Concomitant]
     Dosage: 600 MILLIGRAM
     Route: 048
     Dates: start: 20110119, end: 20110125
  22. ALLOPURINOL [Concomitant]
     Dosage: 100 MILLIGRAM
     Route: 048
     Dates: start: 20060622
  23. LENDORMIN D [Concomitant]
     Dosage: .25 MILLIGRAM
     Route: 048
     Dates: start: 20081115
  24. LENDORMIN D [Concomitant]
     Dosage: .25 MILLIGRAM
     Route: 048
     Dates: start: 20110302
  25. PRIMPERAN TAB [Concomitant]
     Indication: PROPHYLAXIS
     Dosage: 10 MILLIGRAM
     Route: 041
     Dates: start: 20101211, end: 20101211
  26. DEXAMETHASONE ACETATE [Suspect]
     Dosage: 40 MILLIGRAM
     Route: 048
     Dates: start: 20110105, end: 20110106
  27. HOKUNALIN:TAPE [Concomitant]
     Route: 065
     Dates: start: 20110105
  28. REVLIMID [Suspect]
     Dosage: 10 MILLIGRAM
     Route: 048
     Dates: start: 20110330, end: 20110413
  29. REVLIMID [Suspect]
     Dosage: 10 MILLIGRAM
     Route: 048
     Dates: start: 20110608, end: 20110613
  30. DEXAMETHASONE ACETATE [Suspect]
     Dosage: 40 MILLIGRAM
     Route: 048
     Dates: start: 20101215, end: 20101215
  31. HOKUNALIN:TAPE [Concomitant]
     Dosage: 2 MILLIGRAM
     Route: 061
     Dates: start: 20110302
  32. ZINC OXIDE SIMPLE OINTMENT [Concomitant]
     Route: 061
     Dates: start: 20100927, end: 20101024
  33. REVLIMID [Suspect]
     Dosage: 10 MILLIGRAM
     Route: 048
     Dates: start: 20110302, end: 20110315
  34. MAGNESIUM SULFATE [Concomitant]
     Dosage: 660 MILLIGRAM
     Route: 048
     Dates: start: 20110302
  35. URIEF [Concomitant]
     Dosage: 8 MILLIGRAM
     Route: 048
     Dates: start: 20091208
  36. URIEF [Concomitant]
     Dosage: 8 MILLIGRAM
     Route: 048
     Dates: start: 20110302
  37. LANSOPRAZOLE [Concomitant]
     Dosage: 30 MILLIGRAM
     Route: 048
     Dates: start: 20110302
  38. ASPIRIN [Concomitant]
     Indication: PROPHYLAXIS
     Dosage: 100 MILLIGRAM
     Route: 048
     Dates: start: 20101203, end: 20110201
  39. LASIX [Concomitant]
     Dosage: 10 MILLIGRAM
     Route: 041
     Dates: start: 20101210, end: 20101210
  40. ENSURE [Concomitant]
     Indication: MULTIPLE MYELOMA
     Dosage: 750 MILLILITER
     Route: 048
     Dates: start: 20110608
  41. PROPETO [Concomitant]
     Route: 061
     Dates: start: 20101115

REACTIONS (12)
  - URINARY RETENTION [None]
  - ANAEMIA [None]
  - NEUTROPENIA [None]
  - DELIRIUM [None]
  - RASH [None]
  - BACK PAIN [None]
  - UPPER RESPIRATORY TRACT INFECTION [None]
  - PLATELET COUNT DECREASED [None]
  - DECREASED APPETITE [None]
  - NASOPHARYNGITIS [None]
  - CONSTIPATION [None]
  - UPPER RESPIRATORY TRACT INFLAMMATION [None]
